FAERS Safety Report 9752997 (Version 1)
Quarter: 2013Q4

REPORT INFORMATION
  Report Type: Spontaneous
  Country: GB (occurrence: GB)
  Receive Date: 20131213
  Receipt Date: 20131213
  Transmission Date: 20140711
  Serious: Yes (Other)
  Sender: FDA-Public Use
  Company Number: GB-GALDERMA-GB13003988

PATIENT
  Age: 37 Year
  Sex: Female

DRUGS (1)
  1. PLIAGLIS [Suspect]
     Indication: THERAPEUTIC SKIN CARE TOPICAL
     Dosage: 70MG/G, 70MG/G
     Route: 061
     Dates: start: 20131205, end: 20131205

REACTIONS (6)
  - Type I hypersensitivity [Recovered/Resolved]
  - Hypoaesthesia oral [Recovered/Resolved]
  - Dizziness [Recovered/Resolved]
  - Headache [Recovered/Resolved]
  - Erythema [Recovered/Resolved]
  - Swelling face [Recovered/Resolved]
